FAERS Safety Report 21550195 (Version 1)
Quarter: 2022Q4

REPORT INFORMATION
  Report Type: Spontaneous
  Country: CN (occurrence: None)
  Receive Date: 20221103
  Receipt Date: 20221103
  Transmission Date: 20230113
  Serious: Yes (Hospitalization)
  Sender: FDA-Public Use
  Company Number: 2022A359262

PATIENT
  Age: 18506 Day
  Sex: Female
  Weight: 65 kg

DRUGS (1)
  1. OLAPARIB [Suspect]
     Active Substance: OLAPARIB
     Indication: Ovarian cancer
     Route: 048
     Dates: start: 20220720, end: 20220827

REACTIONS (7)
  - Bone marrow transplant [Recovering/Resolving]
  - Gastrooesophageal reflux disease [Unknown]
  - Palpitations [Recovering/Resolving]
  - Pyrexia [Unknown]
  - Fatigue [Unknown]
  - Decreased appetite [Unknown]
  - Nausea [Unknown]

NARRATIVE: CASE EVENT DATE: 20220901
